FAERS Safety Report 24791703 (Version 2)
Quarter: 2025Q1

REPORT INFORMATION
  Report Type: Spontaneous
  Country: US (occurrence: US)
  Receive Date: 20241231
  Receipt Date: 20250109
  Transmission Date: 20250408
  Serious: No
  Sender: UNITED THERAPEUTICS
  Company Number: US-UNITED THERAPEUTICS-UNT-2024-041514

PATIENT
  Age: 62 Year
  Sex: Female
  Weight: 94.331 kg

DRUGS (14)
  1. REMODULIN [Suspect]
     Active Substance: TREPROSTINIL
     Indication: Pulmonary arterial hypertension
  2. REMODULIN [Suspect]
     Active Substance: TREPROSTINIL
  3. OMEPRAZOLE [Concomitant]
     Active Substance: OMEPRAZOLE
     Indication: Product used for unknown indication
  4. IBUPROFEN [Concomitant]
     Active Substance: IBUPROFEN
     Indication: Product used for unknown indication
  5. IMODIUM MULTI-SYMPTOM RELIEF [Concomitant]
     Active Substance: DIMETHICONE\LOPERAMIDE HYDROCHLORIDE
     Indication: Product used for unknown indication
  6. MINERALS\VITAMINS [Concomitant]
     Active Substance: MINERALS\VITAMINS
     Indication: Product used for unknown indication
  7. LASIX [Concomitant]
     Active Substance: FUROSEMIDE
     Indication: Product used for unknown indication
  8. TYLENOL ARTHRITIS PAIN [Concomitant]
     Active Substance: ACETAMINOPHEN
     Indication: Product used for unknown indication
  9. TRAMADOL HCL [Concomitant]
     Active Substance: TRAMADOL HYDROCHLORIDE
     Indication: Product used for unknown indication
  10. CLARITIN [Concomitant]
     Active Substance: LORATADINE
     Indication: Product used for unknown indication
  11. OXYGEN [Concomitant]
     Active Substance: OXYGEN
     Indication: Product used for unknown indication
  12. COLLAGENASE [Concomitant]
     Active Substance: COLLAGENASE CLOSTRIDIUM HISTOLYTICUM
     Indication: Product used for unknown indication
  13. Icy hot max lidocaine [Concomitant]
     Indication: Product used for unknown indication
  14. LISINOPRIL [Concomitant]
     Active Substance: LISINOPRIL
     Indication: Product used for unknown indication

REACTIONS (14)
  - Dyspnoea exertional [Unknown]
  - Fatigue [Unknown]
  - Anxiety [Unknown]
  - Diarrhoea [Unknown]
  - Arthralgia [Unknown]
  - Infusion site pain [Unknown]
  - Device use error [Unknown]
  - Device infusion issue [Unknown]
  - Device leakage [Unknown]
  - Device leakage [Unknown]
  - Device leakage [Unknown]
  - Device infusion issue [Unknown]
  - Device infusion issue [Unknown]
  - Device leakage [Unknown]

NARRATIVE: CASE EVENT DATE: 20241219
